FAERS Safety Report 11110322 (Version 2)
Quarter: 2015Q2

REPORT INFORMATION
  Report Type: Spontaneous
  Country: CN (occurrence: CN)
  Receive Date: 20150513
  Receipt Date: 20150527
  Transmission Date: 20150821
  Serious: Yes (Life-Threatening, Other)
  Sender: FDA-Public Use
  Company Number: PHHY2015CN057441

PATIENT
  Age: 73 Year
  Sex: Female

DRUGS (1)
  1. ACLASTA [Suspect]
     Active Substance: ZOLEDRONIC ACID
     Indication: OSTEOPOROTIC FRACTURE
     Dosage: 5 MG, ONCE
     Route: 042
     Dates: start: 20150327

REACTIONS (4)
  - Acute kidney injury [Recovered/Resolved with Sequelae]
  - Pathological fracture [Unknown]
  - Blood pressure increased [Unknown]
  - Rhabdomyolysis [Recovered/Resolved with Sequelae]

NARRATIVE: CASE EVENT DATE: 20150328
